FAERS Safety Report 18014695 (Version 4)
Quarter: 2020Q3

REPORT INFORMATION
  Report Type: Spontaneous
  Country: US (occurrence: US)
  Receive Date: 20200713
  Receipt Date: 20200929
  Transmission Date: 20201103
  Serious: No
  Sender: FDA-Public Use
  Company Number: US-JNJFOC-20200714469

PATIENT
  Age: 64 Year
  Sex: Female
  Weight: 80.81 kg

DRUGS (2)
  1. PROLIA [Concomitant]
     Active Substance: DENOSUMAB
     Indication: OSTEOPOROSIS
     Route: 058
  2. SIMPONI [Suspect]
     Active Substance: GOLIMUMAB
     Indication: RHEUMATOID ARTHRITIS
     Dosage: 50.00 MG/0.50 ML
     Route: 058
     Dates: start: 20200704

REACTIONS (5)
  - Liquid product physical issue [Unknown]
  - Needle issue [Unknown]
  - Needle issue [Unknown]
  - Device occlusion [Unknown]
  - Product dose omission issue [Unknown]

NARRATIVE: CASE EVENT DATE: 20200704
